FAERS Safety Report 16682679 (Version 1)
Quarter: 2019Q3

REPORT INFORMATION
  Report Type: Spontaneous
  Country: DZ (occurrence: DZ)
  Receive Date: 20190808
  Receipt Date: 20190808
  Transmission Date: 20191004
  Serious: Yes (Death, Other)
  Sender: FDA-Public Use
  Company Number: DZ-AMGEN-DZASP2019125138

PATIENT
  Age: 50 Year
  Sex: Male
  Weight: 65 kg

DRUGS (2)
  1. ARANESP [Suspect]
     Active Substance: DARBEPOETIN ALFA
     Indication: ANAEMIA
     Dosage: UNK UNK, QWK
     Route: 058
     Dates: start: 20180530
  2. ARANESP [Suspect]
     Active Substance: DARBEPOETIN ALFA
     Dosage: UNK UNK, Q2WK
     Route: 058
     Dates: end: 20180727

REACTIONS (2)
  - Haemoglobin decreased [Not Recovered/Not Resolved]
  - Death [Fatal]

NARRATIVE: CASE EVENT DATE: 201807
